FAERS Safety Report 12257916 (Version 1)
Quarter: 2016Q2

REPORT INFORMATION
  Report Type: Spontaneous
  Country: US (occurrence: US)
  Receive Date: 20160412
  Receipt Date: 20160412
  Transmission Date: 20160815
  Serious: No
  Sender: FDA-Public Use
  Company Number: US-BRISTOL-MYERS SQUIBB COMPANY-BMS-2016-027418

PATIENT
  Sex: Male

DRUGS (5)
  1. ABILIFY [Suspect]
     Active Substance: ARIPIPRAZOLE
     Indication: MANIA
     Dosage: 5 MG, QD
     Route: 048
  2. CODEINE PHOSPHATE W/IBUPROFEN/PARACETAMOL [Concomitant]
     Indication: ARTHRALGIA
     Route: 065
  3. CODEINE PHOSPHATE W/IBUPROFEN/PARACETAMOL [Concomitant]
     Indication: ARTHRITIS
  4. PANTOPRAZOLE [Concomitant]
     Active Substance: PANTOPRAZOLE SODIUM
     Indication: GASTROOESOPHAGEAL REFLUX DISEASE
     Route: 065
  5. ABILIFY [Suspect]
     Active Substance: ARIPIPRAZOLE
     Indication: BIPOLAR I DISORDER
     Dosage: 30 MG, QD
     Route: 048
     Dates: start: 2015

REACTIONS (1)
  - Off label use [Unknown]
